FAERS Safety Report 19179344 (Version 1)
Quarter: 2021Q2

REPORT INFORMATION
  Report Type: Spontaneous
  Country: US (occurrence: US)
  Receive Date: 20210423
  Receipt Date: 20210423
  Transmission Date: 20210717
  Serious: Yes (Other)
  Sender: FDA-Public Use
  Company Number: None

PATIENT
  Age: 44 Year
  Sex: Female
  Weight: 55.35 kg

DRUGS (3)
  1. DOMEBORO [Suspect]
     Active Substance: ALUMINUM ACETATE
     Indication: RASH
     Dosage: ?          QUANTITY:.1 OUNCE(S);?
     Route: 061
     Dates: start: 20210418, end: 20210418
  2. SLIEREX [Concomitant]
  3. ORENCIA [Concomitant]
     Active Substance: ABATACEPT

REACTIONS (3)
  - Urticaria [None]
  - Rash [None]
  - Pruritus [None]

NARRATIVE: CASE EVENT DATE: 20210418
